FAERS Safety Report 11997390 (Version 1)
Quarter: 2016Q1

REPORT INFORMATION
  Report Type: Spontaneous
  Country: US (occurrence: US)
  Receive Date: 20160203
  Receipt Date: 20160203
  Transmission Date: 20160526
  Serious: Yes (Hospitalization)
  Sender: FDA-Public Use
  Company Number: US-AMGEN-USASP2016011541

PATIENT
  Age: 37 Year
  Sex: Female

DRUGS (1)
  1. CORLANOR [Suspect]
     Active Substance: IVABRADINE HYDROCHLORIDE
     Indication: CARDIAC DISORDER
     Dosage: UNK
     Route: 065
     Dates: start: 201601

REACTIONS (5)
  - Hypertension [Unknown]
  - Chest pain [Unknown]
  - Fall [Unknown]
  - Loss of consciousness [Unknown]
  - Heart rate increased [Unknown]

NARRATIVE: CASE EVENT DATE: 201601
